FAERS Safety Report 9441282 (Version 2)
Quarter: 2013Q3

REPORT INFORMATION
  Report Type: Spontaneous
  Country: JP (occurrence: JP)
  Receive Date: 20130805
  Receipt Date: 20130910
  Transmission Date: 20140515
  Serious: Yes (Hospitalization)
  Sender: FDA-Public Use
  Company Number: JP-PFIZER INC-2013225630

PATIENT
  Age: 71 Year
  Sex: Male
  Weight: 51 kg

DRUGS (6)
  1. ESTRACYT [Suspect]
     Indication: PROSTATE CANCER
     Dosage: 313.4 MG
     Route: 048
     Dates: end: 20130724
  2. TRAMAL [Concomitant]
  3. CALCIUM LACTATE HYDRATE [Concomitant]
  4. ONE-ALPHA [Concomitant]
  5. TAKEPRON [Concomitant]
  6. DUROTEP [Concomitant]

REACTIONS (1)
  - Cerebral infarction [Recovering/Resolving]
